FAERS Safety Report 5280572-8 (Version None)
Quarter: 2007Q1

REPORT INFORMATION
  Report Type: 
  Country: None (occurrence: None)
  Receive Date: 20061215
  Receipt Date: 20060815
  Transmission Date: 20070707
  Serious: Yes (Disabling)
  Sender: FDA-Public Use
  Company Number: HQWYE608216AUG06

PATIENT
  Age: 32 Year
  Sex: Female

DRUGS (2)
  1. EFFEXOR XR [Suspect]
     Indication: MAJOR DEPRESSION
     Dosage: ^150 MG TAPERED TO 37.5 MG DAILY^, ORAL
     Route: 048
     Dates: start: 20030101, end: 20060701
  2. EFFEXOR XR [Suspect]
     Indication: PAIN
     Dosage: ^150 MG TAPERED TO 37.5 MG DAILY^, ORAL
     Route: 048
     Dates: start: 20030101, end: 20060701

REACTIONS (6)
  - DIZZINESS [None]
  - DRUG WITHDRAWAL SYNDROME [None]
  - NAUSEA [None]
  - PARAESTHESIA [None]
  - TINNITUS [None]
  - VERTIGO [None]
